FAERS Safety Report 23168240 (Version 1)
Quarter: 2023Q4

REPORT INFORMATION
  Report Type: Spontaneous
  Country: US (occurrence: US)
  Receive Date: 20231109
  Receipt Date: 20231109
  Transmission Date: 20240110
  Serious: No
  Sender: FDA-Public Use
  Company Number: US-TEVA-2023-US-2942098

PATIENT
  Age: 69 Year
  Sex: Male

DRUGS (1)
  1. CLONIDINE HYDROCHLORIDE [Suspect]
     Active Substance: CLONIDINE HYDROCHLORIDE
     Indication: Product used for unknown indication
     Dosage: 0.1 MG/24HR, ONCE WEEKLY
     Route: 062

REACTIONS (2)
  - Rash [Not Recovered/Not Resolved]
  - Application site pruritus [Not Recovered/Not Resolved]
